FAERS Safety Report 17073345 (Version 1)
Quarter: 2019Q4

REPORT INFORMATION
  Report Type: Spontaneous
  Country: TR (occurrence: TR)
  Receive Date: 20191126
  Receipt Date: 20191126
  Transmission Date: 20200122
  Serious: Yes (Hospitalization)
  Sender: FDA-Public Use
  Company Number: TR-LUPIN PHARMACEUTICALS INC.-2019-00722

PATIENT
  Age: 3 Year
  Sex: Female

DRUGS (2)
  1. POLYETHYLENE GLYCOL [Suspect]
     Active Substance: POLYETHYLENE GLYCOLS
     Indication: METAL POISONING
     Dosage: UNK (THIRTIETH HOUR OF 9 L PEG-3500)
     Route: 048
  2. POLYETHYLENE GLYCOL [Suspect]
     Active Substance: POLYETHYLENE GLYCOLS
     Indication: COLONIC LAVAGE
     Dosage: UNK (20 CC/KG/H)
     Route: 048

REACTIONS (1)
  - Urticaria [Recovered/Resolved]
